FAERS Safety Report 8592977-8 (Version None)
Quarter: 2012Q3

REPORT INFORMATION
  Report Type: 
  Country: None (occurrence: None)
  Receive Date: 20120814
  Receipt Date: 20120724
  Transmission Date: 20120928
  Serious: Yes (Hospitalization, Other)
  Sender: FDA-Public Use
  Company Number: JP-009507513-2012SP026219

PATIENT

DRUGS (20)
  1. CELESTAMINE TAB [Concomitant]
     Dosage: UPDATE(22JUN2012)
     Route: 048
     Dates: start: 20120420, end: 20120502
  2. ANTIVIRAL (UNSPECIFIED) [Suspect]
     Dosage: 1500 MG, QD
     Route: 048
     Dates: start: 20120409, end: 20120427
  3. EPINASTINE HYDROCHLORIDE [Concomitant]
     Indication: PROPHYLAXIS
     Dosage: FORMULATION: POR, UPDATE(22JUN2012)
     Route: 048
     Dates: start: 20120309, end: 20120519
  4. REBETOL [Suspect]
     Indication: HEPATITIS C
     Dosage: 400 MG, QD
     Route: 048
     Dates: start: 20120309, end: 20120323
  5. REBETOL [Suspect]
     Dosage: 2250 MG, QD
     Route: 048
     Dates: start: 20120309, end: 20120408
  6. PRIMPERAN TAB [Concomitant]
     Indication: PRODUCT USED FOR UNKNOWN INDICATION
     Dosage: UPDATE(22JUN2012)
     Route: 048
     Dates: end: 20120502
  7. TELAVIC [Suspect]
     Indication: HEPATITIS C
     Route: 048
     Dates: start: 20120309, end: 20120408
  8. ANTIVIRAL (UNSPECIFIED) [Suspect]
     Indication: HEPATITIS C
     Dosage: 2250 MG, QD
     Route: 048
     Dates: start: 20120309, end: 20120408
  9. HERBS (UNSPECIFIED) [Concomitant]
     Indication: PROPHYLAXIS
     Dosage: FORMULATION: POR
     Route: 048
     Dates: start: 20120309
  10. EPINASTINE HYDROCHLORIDE [Concomitant]
     Route: 048
     Dates: start: 20120309, end: 20120510
  11. ALLOPURINOL [Concomitant]
     Indication: HYPERURICAEMIA
     Dosage: UPDATE(22JUN2012)
     Route: 048
     Dates: start: 20120413, end: 20120510
  12. REBETOL [Suspect]
     Dosage: 200 MG, QD
     Route: 048
     Dates: start: 20120324, end: 20120501
  13. TELAVIC [Suspect]
     Route: 048
     Dates: start: 20120409, end: 20120427
  14. ANTIVIRAL (UNSPECIFIED) [Suspect]
     Dosage: 1000 MG, QD
     Route: 048
     Dates: start: 20120428, end: 20120501
  15. CELESTAMINE TAB [Concomitant]
     Indication: PRURIGO
     Dosage: 3 DF, BID
     Route: 048
     Dates: start: 20120319, end: 20120321
  16. CELESTAMINE TAB [Concomitant]
     Dosage: UPDATE(22JUN2012)
     Route: 048
     Dates: start: 20120322, end: 20120419
  17. RIKKUNSHI-TO [Concomitant]
     Indication: PROPHYLAXIS
     Route: 048
     Dates: start: 20120309
  18. TELAVIC [Suspect]
     Route: 048
     Dates: start: 20120428, end: 20120501
  19. MYSER (CYCLOSERINE) [Concomitant]
     Indication: PRODUCT USED FOR UNKNOWN INDICATION
     Dosage: UPDATE(22JUN2012)
     Route: 061
     Dates: start: 20120317, end: 20120510
  20. PEG-INTRON [Suspect]
     Indication: HEPATITIS C
     Dosage: 1.5MCG/KG/WEEK
     Route: 058
     Dates: start: 20120309, end: 20120427

REACTIONS (2)
  - ANAEMIA [None]
  - NAUSEA [None]
